FAERS Safety Report 14257754 (Version 1)
Quarter: 2017Q4

REPORT INFORMATION
  Report Type: Report from Study
  Country: US (occurrence: US)
  Receive Date: 20171207
  Receipt Date: 20171207
  Transmission Date: 20180321
  Serious: Yes (Hospitalization, Other)
  Sender: FDA-Public Use
  Company Number: US-ARIAD-2017US007636

PATIENT
  Age: 76 Year
  Sex: Male
  Weight: 68 kg

DRUGS (11)
  1. IMATINIB [Suspect]
     Active Substance: IMATINIB
     Indication: ACUTE LYMPHOCYTIC LEUKAEMIA
     Dosage: 600 MG, UNK
     Route: 065
  2. PONATINIB [Suspect]
     Active Substance: PONATINIB
     Dosage: 30 MG, QD
     Route: 048
  3. PONATINIB [Suspect]
     Active Substance: PONATINIB
     Dosage: 30 MG, QD
     Route: 048
  4. NILOTINIB [Suspect]
     Active Substance: NILOTINIB
     Indication: ACUTE LYMPHOCYTIC LEUKAEMIA
     Dosage: 300 MG, BID
     Route: 065
  5. PONATINIB [Suspect]
     Active Substance: PONATINIB
     Dosage: 30 MG, QD
     Route: 048
     Dates: start: 201511
  6. PONATINIB [Suspect]
     Active Substance: PONATINIB
     Indication: ACUTE LYMPHOCYTIC LEUKAEMIA
     Dosage: 15 MG, QD
     Route: 048
     Dates: start: 20140815
  7. VINCRISTINE SULFATE. [Suspect]
     Active Substance: VINCRISTINE SULFATE
     Indication: ACUTE LYMPHOCYTIC LEUKAEMIA
     Dosage: UNK
     Route: 065
  8. PONATINIB [Suspect]
     Active Substance: PONATINIB
     Dosage: 15 MG, QD
     Route: 048
  9. METHOTREXATE. [Suspect]
     Active Substance: METHOTREXATE
     Indication: ACUTE LYMPHOCYTIC LEUKAEMIA
     Dosage: UNK
     Route: 065
  10. PURINETHOL [Suspect]
     Active Substance: MERCAPTOPURINE
     Indication: ACUTE LYMPHOCYTIC LEUKAEMIA
     Dosage: UNK
     Route: 065
  11. PREDNISONE. [Suspect]
     Active Substance: PREDNISONE
     Indication: ACUTE LYMPHOCYTIC LEUKAEMIA
     Dosage: UNK
     Route: 065

REACTIONS (21)
  - Clostridium difficile infection [Unknown]
  - Drug ineffective [Unknown]
  - Thrombocytopenia [Unknown]
  - Cytokine release syndrome [Recovered/Resolved]
  - White blood cell count increased [Unknown]
  - Hospitalisation [Not Recovered/Not Resolved]
  - Nodule [Unknown]
  - Fatigue [Unknown]
  - Neoplasm progression [Not Recovered/Not Resolved]
  - Ileus [Unknown]
  - Neuropathy peripheral [Unknown]
  - Bone pain [Unknown]
  - Pain [Unknown]
  - Acute lymphocytic leukaemia recurrent [Unknown]
  - Staphylococcal infection [Unknown]
  - Skin exfoliation [Unknown]
  - Abdominal distension [Unknown]
  - Neurotoxicity [Recovered/Resolved]
  - Skin toxicity [Unknown]
  - Blood lactate dehydrogenase increased [Unknown]
  - Epistaxis [Unknown]

NARRATIVE: CASE EVENT DATE: 201701
